FAERS Safety Report 15750328 (Version 1)
Quarter: 2018Q4

REPORT INFORMATION
  Report Type: Other
  Country: ES (occurrence: ES)
  Receive Date: 20181221
  Receipt Date: 20181221
  Transmission Date: 20190205
  Serious: Yes (Death, Hospitalization, Other)
  Sender: FDA-Public Use
  Company Number: ES-APOTEX-2018AP027732

PATIENT
  Age: 75 Year
  Sex: Female

DRUGS (6)
  1. TRAMADOL. [Suspect]
     Active Substance: TRAMADOL
     Indication: PRODUCT USED FOR UNKNOWN INDICATION
     Dosage: 50 MG, TID (A TOTAL OF 150 MG PER DAY)
     Route: 048
     Dates: start: 2015, end: 20150918
  2. OMEPRAZOLE. [Interacting]
     Active Substance: OMEPRAZOLE
     Indication: PRODUCT USED FOR UNKNOWN INDICATION
     Dosage: 20 MG, QD (20 MG ONCE A DAY)
     Route: 048
     Dates: start: 2013, end: 20150918
  3. SIMVASTATIN. [Interacting]
     Active Substance: SIMVASTATIN
     Indication: HYPERCHOLESTEROLAEMIA
     Dosage: 20 MG, TID (60 MG ONCE A DAY)
     Route: 048
     Dates: start: 2013, end: 20150918
  4. SINTROM [Interacting]
     Active Substance: ACENOCOUMAROL
     Indication: VALVULOPLASTY CARDIAC
     Dosage: UNK
     Route: 048
     Dates: start: 2013, end: 20150918
  5. METAMIZOL                          /06276701/ [Concomitant]
     Active Substance: METAMIZOLE
     Indication: PRODUCT USED FOR UNKNOWN INDICATION
     Dosage: 575 MG, TID (EVERY 8 HOURS)
     Route: 048
     Dates: start: 2015, end: 20150918
  6. ALOPURINOL [Interacting]
     Active Substance: ALLOPURINOL
     Indication: PRODUCT USED FOR UNKNOWN INDICATION
     Dosage: 100 MG, QD (100 MG ONCE A DAY)
     Route: 048
     Dates: start: 2015, end: 20150918

REACTIONS (1)
  - Cerebral haemorrhage [Fatal]

NARRATIVE: CASE EVENT DATE: 20150918
